FAERS Safety Report 23961913 (Version 6)
Quarter: 2024Q3

REPORT INFORMATION
  Report Type: Report from Study
  Country: US (occurrence: US)
  Receive Date: 20240611
  Receipt Date: 20240919
  Transmission Date: 20241017
  Serious: Yes (Death, Hospitalization, Other)
  Sender: INSMED
  Company Number: US-INSMED, INC.-2024-02226-US

PATIENT
  Sex: Male

DRUGS (3)
  1. ARIKAYCE [Suspect]
     Active Substance: AMIKACIN
     Indication: Product used for unknown indication
     Dosage: 590 MILLIGRAM, QD
     Route: 055
     Dates: start: 202405, end: 202405
  2. ARIKAYCE [Suspect]
     Active Substance: AMIKACIN
     Dosage: 590 MILLIGRAM, QD
     Route: 055
     Dates: start: 2024, end: 2024
  3. ARIKAYCE [Suspect]
     Active Substance: AMIKACIN
     Dosage: UNK, UNK
     Route: 055
     Dates: start: 20240814, end: 20240909

REACTIONS (8)
  - Death [Fatal]
  - Hospitalisation [Unknown]
  - Pneumonia [Not Recovered/Not Resolved]
  - Condition aggravated [Unknown]
  - Rehabilitation therapy [Unknown]
  - Living in residential institution [Unknown]
  - Hospice care [Unknown]
  - Therapy interrupted [Unknown]

NARRATIVE: CASE EVENT DATE: 20240101
